FAERS Safety Report 9875613 (Version 2)
Quarter: 2014Q1

REPORT INFORMATION
  Report Type: Other
  Country: US (occurrence: US)
  Receive Date: 20140206
  Receipt Date: 20140206
  Transmission Date: 20141002
  Serious: No
  Sender: FDA-Public Use
  Company Number: US-ACORDA-ACO_36869_2013

PATIENT
  Age: 62 Year
  Sex: Female
  Weight: 74.83 kg

DRUGS (7)
  1. AMPYRA [Suspect]
     Indication: GAIT DISTURBANCE
     Dosage: 10 MG, Q 12 HRS
     Route: 048
     Dates: start: 20130603, end: 20130611
  2. GILENYA [Concomitant]
     Indication: MULTIPLE SCLEROSIS
     Dosage: 0.5 MG, QD
     Route: 048
     Dates: start: 201201
  3. ADDERALL [Concomitant]
     Indication: COGNITIVE DISORDER
     Dosage: 15 MG, QD
     Route: 048
  4. CYMBALTA [Concomitant]
     Indication: MAJOR DEPRESSION
     Dosage: 60 MG, QD
     Route: 048
  5. NEURONTIN [Concomitant]
     Indication: BURNING SENSATION
     Dosage: 600 MG, TID
     Route: 048
     Dates: start: 2011
  6. CLONAZEPAM [Concomitant]
     Indication: GENERALISED ANXIETY DISORDER
     Dosage: 1 MG HS, UNK
     Route: 048
  7. DITROPAN [Concomitant]
     Indication: BLADDER SPASM
     Dosage: 5 MG, TID
     Route: 048

REACTIONS (3)
  - Dizziness [Recovered/Resolved]
  - Nausea [Recovered/Resolved]
  - Headache [Recovered/Resolved]
